FAERS Safety Report 15997900 (Version 1)
Quarter: 2019Q1

REPORT INFORMATION
  Report Type: Spontaneous
  Country: US (occurrence: US)
  Receive Date: 20190222
  Receipt Date: 20190222
  Transmission Date: 20190418
  Serious: Yes (Other)
  Sender: FDA-Public Use
  Company Number: US-PFIZER INC-2019084812

PATIENT

DRUGS (5)
  1. PROTONIX [Suspect]
     Active Substance: PANTOPRAZOLE SODIUM
  2. NEXIUM [Suspect]
     Active Substance: ESOMEPRAZOLE MAGNESIUM
  3. PRILOSEC [Suspect]
     Active Substance: OMEPRAZOLE MAGNESIUM
  4. DEXILANT [Suspect]
     Active Substance: DEXLANSOPRAZOLE
  5. PREVACID [Suspect]
     Active Substance: LANSOPRAZOLE

REACTIONS (1)
  - Chronic kidney disease [Unknown]
